FAERS Safety Report 10173265 (Version 1)
Quarter: 2014Q2

REPORT INFORMATION
  Report Type: Spontaneous
  Country: US (occurrence: None)
  Receive Date: 20140514
  Receipt Date: 20140514
  Transmission Date: 20141212
  Serious: Yes (Disabling)
  Sender: FDA-Public Use
  Company Number: None

PATIENT
  Age: 31 Year
  Sex: Female
  Weight: 65.77 kg

DRUGS (1)
  1. ELMIRON [Suspect]
     Indication: CYSTITIS
     Dosage: 1 PILL MORNING/ 2PILLS EVENING TWICE DAILY TAKEN BY MOUTH
     Route: 048

REACTIONS (8)
  - Faeces soft [None]
  - Diarrhoea [None]
  - Abdominal pain upper [None]
  - Mucous stools [None]
  - Flatulence [None]
  - Nausea [None]
  - Abdominal pain [None]
  - Quality of life decreased [None]
